FAERS Safety Report 7573984-0 (Version None)
Quarter: 2011Q2

REPORT INFORMATION
  Report Type: 
  Country: None (occurrence: None)
  Receive Date: 20110627
  Receipt Date: 20110525
  Transmission Date: 20111010
  Serious: Yes (Hospitalization, Other)
  Sender: FDA-Public Use
  Company Number: FR-CELGENEUS-056-21880-09121931

PATIENT
  Sex: Male

DRUGS (8)
  1. REVLIMID [Suspect]
     Indication: MULTIPLE MYELOMA
     Dosage: 25 MILLIGRAM
     Route: 048
     Dates: start: 20091123, end: 20091206
  2. PREVISCAN [Concomitant]
     Route: 065
  3. PREVISCAN [Concomitant]
     Dosage: .75 DOSAGE FORMS
     Route: 065
     Dates: start: 20091218
  4. PREVISCAN [Concomitant]
     Dosage: .25 DOSAGE FORMS
     Route: 065
     Dates: start: 20091223
  5. DEXAMETHASONE [Suspect]
     Indication: MULTIPLE MYELOMA
     Dosage: 40 MILLIGRAM
     Route: 048
     Dates: start: 20091123, end: 20091203
  6. VALACYCLOVIR HYDROCHLORIDE [Concomitant]
     Dosage: 1000 MILLIGRAM
  7. VELCADE [Suspect]
     Indication: MULTIPLE MYELOMA
     Route: 051
     Dates: start: 20091123, end: 20091203
  8. BACTRIM DS [Concomitant]
     Dosage: 1 TABLET
     Route: 048

REACTIONS (2)
  - LUNG DISORDER [None]
  - INTERNATIONAL NORMALISED RATIO INCREASED [None]
